FAERS Safety Report 6158263-0 (Version None)
Quarter: 2009Q2

REPORT INFORMATION
  Report Type: 
  Country: None (occurrence: None)
  Receive Date: 20090414
  Receipt Date: 20090414
  Transmission Date: 20091009
  Serious: Yes (Hospitalization, Disabling)
  Sender: FDA-Public Use
  Company Number: None

PATIENT
  Age: 64 Year
  Sex: Male
  Weight: 112.4921 kg

DRUGS (1)
  1. PROPAFENONE HCL [Suspect]
     Indication: CARDIAC FIBRILLATION
     Dosage: 1 TAB TWICE DAILY PO
     Route: 048
     Dates: start: 20081101, end: 20090301

REACTIONS (4)
  - ATRIAL FIBRILLATION [None]
  - BLOOD PRESSURE FLUCTUATION [None]
  - DRUG INEFFECTIVE [None]
  - HEART RATE IRREGULAR [None]
